FAERS Safety Report 5385159-4 (Version None)
Quarter: 2007Q3

REPORT INFORMATION
  Report Type: 
  Country: None (occurrence: None)
  Receive Date: 20070709
  Receipt Date: 20070629
  Transmission Date: 20080115
  Serious: Yes (Hospitalization)
  Sender: FDA-Public Use
  Company Number: 2007SP010924

PATIENT
  Age: 69 Year
  Sex: Female
  Weight: 52 kg

DRUGS (14)
  1. TEMODAL [Suspect]
     Indication: ANAPLASTIC ASTROCYTOMA
     Dosage: 75 MG/M2; QD; PO
     Route: 048
     Dates: start: 20070530, end: 20070601
  2. PHENYTOIN [Suspect]
     Indication: PROPHYLAXIS
     Dosage: 400 MG; PO
     Route: 048
     Dates: start: 20070509, end: 20070611
  3. FERON [Concomitant]
  4. BAKTAR [Concomitant]
  5. LOXONIN [Concomitant]
  6. DEPAS [Concomitant]
  7. MICARDIS [Concomitant]
  8. AMLODIN [Concomitant]
  9. GASTER D [Concomitant]
  10. PREDONINE [Concomitant]
  11. ZOFRAN [Concomitant]
  12. ALESION [Concomitant]
  13. POLARAMINE [Concomitant]
  14. EURAX  H [Concomitant]

REACTIONS (1)
  - TOXIC SKIN ERUPTION [None]
